FAERS Safety Report 4436969-9 (Version None)
Quarter: 2004Q3

REPORT INFORMATION
  Report Type: 
  Country: None (occurrence: None)
  Receive Date: 20040830
  Receipt Date: 20031103
  Transmission Date: 20050211
  Serious: No
  Sender: FDA-Public Use
  Company Number: US-GLAXOSMITHKLINE-A0432588A

PATIENT
  Sex: Male

DRUGS (1)
  1. BECONASE [Suspect]
     Dosage: 1SPR TWICE PER DAY
     Route: 045

REACTIONS (4)
  - DYSGEUSIA [None]
  - INFLUENZA LIKE ILLNESS [None]
  - PAIN [None]
  - PYREXIA [None]
